FAERS Safety Report 9933693 (Version 2)
Quarter: 2014Q1

REPORT INFORMATION
  Report Type: Report from Study
  Country: US (occurrence: US)
  Receive Date: 20140228
  Receipt Date: 20140228
  Transmission Date: 20141002
  Serious: No
  Sender: FDA-Public Use
  Company Number: US-ABBVIE-13P-163-1184080-00

PATIENT
  Age: 57 Year
  Sex: 0
  Weight: 80.81 kg

DRUGS (6)
  1. ANDROGEL [Suspect]
     Indication: BLOOD TESTOSTERONE DECREASED
     Dates: start: 201304
  2. LAMICTAL [Concomitant]
     Indication: CONVULSION
  3. ACYCLOVIR [Concomitant]
     Indication: HERPES VIRUS INFECTION
  4. UROXATRAL [Concomitant]
     Indication: PROSTATOMEGALY
  5. VITAMIN B12 [Concomitant]
     Indication: PRODUCT USED FOR UNKNOWN INDICATION
  6. NEXIUM [Concomitant]
     Indication: GASTROOESOPHAGEAL REFLUX DISEASE

REACTIONS (5)
  - Wound [Not Recovered/Not Resolved]
  - Acne [Not Recovered/Not Resolved]
  - Prostatic specific antigen increased [Not Recovered/Not Resolved]
  - Pain [Not Recovered/Not Resolved]
  - Purulence [Not Recovered/Not Resolved]
